FAERS Safety Report 11113527 (Version 1)
Quarter: 2015Q2

REPORT INFORMATION
  Report Type: Report from Study
  Country: US (occurrence: US)
  Receive Date: 20150514
  Receipt Date: 20150514
  Transmission Date: 20150821
  Serious: Yes (Life-Threatening, Hospitalization, Other)
  Sender: FDA-Public Use
  Company Number: US-ASTRAZENECA-2015SE43492

PATIENT
  Age: 46 Year
  Sex: Female
  Weight: 64.9 kg

DRUGS (34)
  1. NEXIUM [Suspect]
     Active Substance: ESOMEPRAZOLE MAGNESIUM
     Indication: HIATUS HERNIA
     Route: 048
     Dates: start: 201503
  2. COUMADIN [Suspect]
     Active Substance: WARFARIN SODIUM
     Route: 065
  3. LASIX [Concomitant]
     Active Substance: FUROSEMIDE
     Indication: LYMPHOEDEMA
     Route: 048
  4. METOLAZONE. [Concomitant]
     Active Substance: METOLAZONE
     Indication: LYMPHOEDEMA
     Route: 048
     Dates: start: 2009
  5. PRILOSEC OTC [Suspect]
     Active Substance: OMEPRAZOLE MAGNESIUM
     Indication: GASTROOESOPHAGEAL REFLUX DISEASE
     Route: 048
  6. PLAVIX [Suspect]
     Active Substance: CLOPIDOGREL BISULFATE
     Route: 048
  7. WARFARIN SODIUM. [Concomitant]
     Active Substance: WARFARIN SODIUM
     Indication: PHLEBITIS
     Dosage: 1 TO 5 MG, UNKNOWN
     Route: 048
     Dates: start: 2015
  8. PERCOCET [Concomitant]
     Active Substance: ACETAMINOPHEN\OXYCODONE HYDROCHLORIDE
     Indication: PAIN
     Route: 048
     Dates: start: 2008
  9. NEXIUM [Suspect]
     Active Substance: ESOMEPRAZOLE MAGNESIUM
     Indication: GASTROOESOPHAGEAL REFLUX DISEASE
     Route: 048
     Dates: start: 2010, end: 2012
  10. NEXIUM [Suspect]
     Active Substance: ESOMEPRAZOLE MAGNESIUM
     Indication: GASTROOESOPHAGEAL REFLUX DISEASE
     Route: 048
     Dates: start: 2012, end: 201501
  11. METOPROLOL TARTRATE. [Concomitant]
     Active Substance: METOPROLOL TARTRATE
     Indication: CARDIAC DISORDER
     Route: 048
  12. AMPHETAMINE [Concomitant]
     Active Substance: AMPHETAMINE
     Indication: BIPOLAR DISORDER
     Route: 048
     Dates: start: 2014
  13. CYMBALTA [Concomitant]
     Active Substance: DULOXETINE HYDROCHLORIDE
     Indication: NEURALGIA
     Dosage: GENERIC
     Route: 048
     Dates: start: 2014
  14. NEXIUM [Suspect]
     Active Substance: ESOMEPRAZOLE MAGNESIUM
     Indication: HIATUS HERNIA
     Route: 048
     Dates: start: 2012, end: 201501
  15. NEXIUM [Suspect]
     Active Substance: ESOMEPRAZOLE MAGNESIUM
     Indication: GASTROOESOPHAGEAL REFLUX DISEASE
     Dosage: AS REQUIRED OR EVERY OTHER DAY
     Route: 048
  16. NEXIUM [Suspect]
     Active Substance: ESOMEPRAZOLE MAGNESIUM
     Indication: HIATUS HERNIA
     Dosage: AS REQUIRED OR EVERY OTHER DAY
     Route: 048
  17. DOCULATE [Concomitant]
     Indication: ABNORMAL FAECES
     Route: 048
  18. DISACODYL [Concomitant]
     Route: 048
  19. AMLODIPINE [Concomitant]
     Active Substance: AMLODIPINE BESYLATE
     Indication: BLOOD PRESSURE ABNORMAL
     Route: 048
  20. PRILOSEC [Suspect]
     Active Substance: OMEPRAZOLE MAGNESIUM
     Indication: HIATUS HERNIA
     Route: 048
  21. HYDROMORPHONE [Concomitant]
     Active Substance: HYDROMORPHONE
     Indication: PAIN
     Route: 048
     Dates: start: 2014
  22. LEVOTHYROXINE [Concomitant]
     Active Substance: LEVOTHYROXINE
     Indication: THYROID DISORDER
     Route: 048
     Dates: start: 2012
  23. OXYCODONE [Concomitant]
     Active Substance: OXYCODONE
     Indication: PAIN
     Route: 048
     Dates: start: 2013
  24. NEXIUM [Suspect]
     Active Substance: ESOMEPRAZOLE MAGNESIUM
     Indication: HIATUS HERNIA
     Route: 048
     Dates: start: 2010, end: 2012
  25. ATORVASTATIN [Concomitant]
     Active Substance: ATORVASTATIN
     Indication: BLOOD CHOLESTEROL ABNORMAL
     Route: 048
     Dates: start: 2012
  26. NEXIUM [Suspect]
     Active Substance: ESOMEPRAZOLE MAGNESIUM
     Indication: GASTROOESOPHAGEAL REFLUX DISEASE
     Route: 048
     Dates: start: 201503
  27. PRILOSEC [Suspect]
     Active Substance: OMEPRAZOLE MAGNESIUM
     Indication: GASTROOESOPHAGEAL REFLUX DISEASE
     Route: 048
     Dates: start: 2010
  28. PRILOSEC [Suspect]
     Active Substance: OMEPRAZOLE MAGNESIUM
     Indication: HIATUS HERNIA
     Route: 048
     Dates: start: 2010
  29. GRANISETRON [Suspect]
     Active Substance: GRANISETRON
     Indication: NAUSEA
     Route: 048
     Dates: start: 2014
  30. SERTRALINE [Concomitant]
     Active Substance: SERTRALINE HYDROCHLORIDE
     Indication: BIPOLAR DISORDER
     Route: 048
     Dates: start: 2013
  31. COZAAR [Concomitant]
     Active Substance: LOSARTAN POTASSIUM
     Indication: HYPERTENSION
     Route: 048
     Dates: start: 2012
  32. PRILOSEC [Suspect]
     Active Substance: OMEPRAZOLE MAGNESIUM
     Indication: GASTROOESOPHAGEAL REFLUX DISEASE
     Route: 048
  33. XANAX [Concomitant]
     Active Substance: ALPRAZOLAM
     Indication: ANXIETY
     Route: 048
     Dates: start: 2010
  34. AMITIZA [Concomitant]
     Active Substance: LUBIPROSTONE
     Route: 048

REACTIONS (54)
  - Apparent death [Unknown]
  - Mouth haemorrhage [Unknown]
  - Bone loss [Unknown]
  - Haemorrhage [Unknown]
  - Chest pain [Unknown]
  - Hypothyroidism [Unknown]
  - Off label use [Unknown]
  - Sepsis [Unknown]
  - Gastrointestinal neoplasm [Unknown]
  - Dizziness [Unknown]
  - Overdose [Unknown]
  - Panic attack [Unknown]
  - Arrhythmia [Unknown]
  - Loss of consciousness [Unknown]
  - Lymphoedema [Unknown]
  - Ovarian cancer [Unknown]
  - Nausea [Unknown]
  - Toxic neuropathy [Unknown]
  - Adverse event [Unknown]
  - Intentional product misuse [Unknown]
  - Drug ineffective [Unknown]
  - Cerebrovascular accident [Unknown]
  - Tooth loss [Unknown]
  - Asthenia [Unknown]
  - Dyspepsia [Unknown]
  - Hypophagia [Unknown]
  - Vomiting [Unknown]
  - Pneumonia [Unknown]
  - Gastrooesophageal reflux disease [Unknown]
  - Dysphagia [Unknown]
  - Hypertension [Unknown]
  - Hiatus hernia [Unknown]
  - Abdominal pain upper [Unknown]
  - Blood pressure fluctuation [Unknown]
  - Gastritis [Unknown]
  - Fibromyalgia [Unknown]
  - Pyrexia [Unknown]
  - Coagulopathy [Unknown]
  - Drug dose omission [Unknown]
  - Cardiac murmur [Unknown]
  - Dehydration [Unknown]
  - Staphylococcal infection [Unknown]
  - Constipation [Unknown]
  - Diarrhoea [Unknown]
  - Dysgeusia [Unknown]
  - Phlebitis [Unknown]
  - Regurgitation [Unknown]
  - Empyema [Unknown]
  - Thrombosis [Unknown]
  - Livedo reticularis [Unknown]
  - Systemic lupus erythematosus [Unknown]
  - Malaise [Unknown]
  - Weight decreased [Unknown]
  - Back pain [Unknown]

NARRATIVE: CASE EVENT DATE: 2012
